FAERS Safety Report 8191016-0 (Version None)
Quarter: 2012Q1

REPORT INFORMATION
  Report Type: 
  Country: None (occurrence: None)
  Receive Date: 20120307
  Receipt Date: 20120227
  Transmission Date: 20120608
  Serious: Yes (Other)
  Sender: FDA-Public Use
  Company Number: BE-ROXANE LABORATORIES, INC.-2012-RO-00739RO

PATIENT
  Age: 13 Year
  Sex: Male

DRUGS (2)
  1. OXCARBAZEPINE [Suspect]
     Indication: PARTIAL SEIZURES
  2. OXCARBAZEPINE [Suspect]
     Dosage: 3000 MG

REACTIONS (3)
  - GRAND MAL CONVULSION [None]
  - CONDITION AGGRAVATED [None]
  - CONVULSION [None]
